FAERS Safety Report 4646772-2 (Version None)
Quarter: 2005Q2

REPORT INFORMATION
  Report Type: 
  Country: None (occurrence: None)
  Receive Date: 20050426
  Receipt Date: 20050426
  Transmission Date: 20051028
  Serious: Yes (Other)
  Sender: FDA-Public Use
  Company Number: None

PATIENT
  Age: 70 Year
  Sex: Female
  Weight: 68.0396 kg

DRUGS (2)
  1. MEDERMA  CREAM      MERZ PHARMACEUTICAL [Suspect]
     Indication: PROPHYLAXIS
     Dosage: CREAM    TWICE A DAY   TOPICAL
     Route: 061
     Dates: start: 20050401, end: 20050403
  2. MEDERMA  CREAM      MERZ PHARMACEUTICAL [Suspect]
     Indication: SCAR
     Dosage: CREAM    TWICE A DAY   TOPICAL
     Route: 061
     Dates: start: 20050401, end: 20050403

REACTIONS (3)
  - BURNING SENSATION [None]
  - ERYTHEMA [None]
  - RASH [None]
